APPROVED DRUG PRODUCT: ADRENACLICK
Active Ingredient: EPINEPHRINE
Strength: EQ 0.3MG/DELIVERY
Dosage Form/Route: INJECTABLE;INTRAMUSCULAR, SUBCUTANEOUS
Application: N020800 | Product #004 | TE Code: BX
Applicant: IMPAX LABORATORIES LLC
Approved: Nov 25, 2009 | RLD: Yes | RS: Yes | Type: RX